FAERS Safety Report 4564525-0 (Version None)
Quarter: 2005Q1

REPORT INFORMATION
  Report Type: 
  Country: None (occurrence: None)
  Receive Date: 20050128
  Receipt Date: 20050117
  Transmission Date: 20050727
  Serious: Yes (Other)
  Sender: FDA-Public Use
  Company Number: IT-JNJFOC-20050105366

PATIENT
  Age: 72 Year
  Sex: Female

DRUGS (2)
  1. GALANTAMINE [Suspect]
  2. FUROSEMIDE [Concomitant]
     Indication: HYPERTENSION

REACTIONS (7)
  - DIFFICULTY IN WALKING [None]
  - DYSSTASIA [None]
  - DYSTONIA [None]
  - FALL [None]
  - FEMUR FRACTURE [None]
  - MUSCLE SPASMS [None]
  - PLEUROTHOTONUS [None]
